FAERS Safety Report 17647392 (Version 1)
Quarter: 2020Q2

REPORT INFORMATION
  Report Type: Report from Study
  Country: None (occurrence: US)
  Receive Date: 20200408
  Receipt Date: 20200408
  Transmission Date: 20200713
  Serious: No
  Sender: FDA-Public Use
  Company Number: US-BIOVITRUM-2019US3472

PATIENT
  Age: 82 Year
  Sex: Male

DRUGS (8)
  1. KINERET [Suspect]
     Active Substance: ANAKINRA
     Indication: PRODUCT USED FOR UNKNOWN INDICATION
     Route: 058
     Dates: start: 20190926, end: 20190928
  2. METHOTREXATE. [Concomitant]
     Active Substance: METHOTREXATE
  3. HYDROCHLOROT [Concomitant]
     Active Substance: HYDROCHLOROTHIAZIDE
  4. FOLIC ACID. [Concomitant]
     Active Substance: FOLIC ACID
  5. LIPITOR [Concomitant]
     Active Substance: ATORVASTATIN CALCIUM
  6. PROSCAR [Concomitant]
     Active Substance: FINASTERIDE
  7. PREDNISONE. [Concomitant]
     Active Substance: PREDNISONE
  8. PROCARDIA [Concomitant]
     Active Substance: NIFEDIPINE

REACTIONS (4)
  - Injection site erythema [Recovering/Resolving]
  - Injection site pruritus [Recovering/Resolving]
  - Nasopharyngitis [Unknown]
  - Urticaria [Unknown]

NARRATIVE: CASE EVENT DATE: 20190928
